FAERS Safety Report 23497528 (Version 1)
Quarter: 2024Q1

REPORT INFORMATION
  Report Type: Spontaneous
  Country: US (occurrence: US)
  Receive Date: 20240208
  Receipt Date: 20240208
  Transmission Date: 20240410
  Serious: No
  Sender: FDA-Public Use
  Company Number: US-SA-SAC20240206000474

PATIENT
  Age: 35 Year
  Sex: Male

DRUGS (9)
  1. REZUROCK [Suspect]
     Active Substance: BELUMOSUDIL
     Indication: Acute graft versus host disease
     Dosage: 200 MG, QD
     Route: 048
  2. PANTOPRAZOLE [Concomitant]
     Active Substance: PANTOPRAZOLE
     Dosage: UNK
  3. ACETAMINOPHEN [Concomitant]
     Active Substance: ACETAMINOPHEN
     Dosage: UNK
  4. SUBOXONE [Concomitant]
     Active Substance: BUPRENORPHINE HYDROCHLORIDE\NALOXONE HYDROCHLORIDE
     Dosage: UNK
  5. ACYCLOVIR [Concomitant]
     Active Substance: ACYCLOVIR
     Dosage: UNK
  6. BACTRIM DS [Concomitant]
     Active Substance: SULFAMETHOXAZOLE\TRIMETHOPRIM
     Dosage: UNK
  7. ACTIGALL [Concomitant]
     Active Substance: URSODIOL
     Dosage: UNK
  8. JAKAFI [Concomitant]
     Active Substance: RUXOLITINIB
     Dosage: UNK
  9. IMBRUVICA [Concomitant]
     Active Substance: IBRUTINIB
     Dosage: UNK

REACTIONS (2)
  - Blood test abnormal [Recovering/Resolving]
  - Inappropriate schedule of product administration [Unknown]
